FAERS Safety Report 20920937 (Version 1)
Quarter: 2022Q2

REPORT INFORMATION
  Report Type: Spontaneous
  Country: FR (occurrence: FR)
  Receive Date: 20220606
  Receipt Date: 20220606
  Transmission Date: 20220721
  Serious: Yes (Life-Threatening, Hospitalization, Other)
  Sender: FDA-Public Use
  Company Number: None

PATIENT
  Age: 24 Year
  Sex: Male
  Weight: 60 kg

DRUGS (2)
  1. LYRICA [Suspect]
     Active Substance: PREGABALIN
     Dosage: 2-3 TABLETS DAILY FOR 2 YEARS AND 4 MONTHS
     Route: 048
     Dates: start: 201911
  2. LYRICA [Suspect]
     Active Substance: PREGABALIN
     Dosage: 19 TABLETS OF LYRICA 150 MG TAKEN ONCE AT 3 P.M., I.E. 2850 MG
     Route: 048
     Dates: start: 20220307, end: 20220307

REACTIONS (4)
  - Poisoning deliberate [Recovered/Resolved]
  - Tonic convulsion [Recovered/Resolved]
  - Somnolence [Recovered/Resolved]
  - Drug dependence [Not Recovered/Not Resolved]

NARRATIVE: CASE EVENT DATE: 20191101
